FAERS Safety Report 12556791 (Version 2)
Quarter: 2016Q3

REPORT INFORMATION
  Report Type: Spontaneous
  Country: US (occurrence: US)
  Receive Date: 20160714
  Receipt Date: 20160725
  Transmission Date: 20161109
  Serious: Yes (Life-Threatening)
  Sender: FDA-Public Use
  Company Number: US-SA-2016SA127298

PATIENT
  Age: 73 Year
  Sex: Female

DRUGS (3)
  1. IBUPROFEN. [Suspect]
     Active Substance: IBUPROFEN
     Indication: SINUS HEADACHE
     Route: 065
  2. ALLEGRA ALLERGY [Suspect]
     Active Substance: FEXOFENADINE HYDROCHLORIDE
     Indication: HYPERSENSITIVITY
     Dosage: START SINCE 3-4 YEARS
     Route: 048
  3. ALEVE [Suspect]
     Active Substance: NAPROXEN SODIUM
     Indication: SINUS HEADACHE
     Route: 065

REACTIONS (6)
  - Haemorrhage [Unknown]
  - Expired product administered [Unknown]
  - Circulatory collapse [Unknown]
  - Thrombosis [Unknown]
  - Hypotension [Unknown]
  - Duodenal ulcer [Unknown]
